FAERS Safety Report 7292566-1 (Version None)
Quarter: 2011Q1

REPORT INFORMATION
  Report Type: 
  Country: None (occurrence: None)
  Receive Date: 20110215
  Receipt Date: 20110204
  Transmission Date: 20110831
  Serious: Yes (Death, Other)
  Sender: FDA-Public Use
  Company Number: PL-CELGENEUS-129-21880-10121504

PATIENT
  Sex: Male

DRUGS (2)
  1. ACENOCUMAROL [Concomitant]
     Route: 048
  2. REVLIMID [Suspect]
     Indication: MULTIPLE MYELOMA
     Route: 048
     Dates: start: 20101115, end: 20101205

REACTIONS (2)
  - DEATH [None]
  - THROMBOCYTOPENIA [None]
